FAERS Safety Report 8582918-1 (Version None)
Quarter: 2012Q3

REPORT INFORMATION
  Report Type: 
  Country: None (occurrence: None)
  Receive Date: 20120809
  Receipt Date: 20120801
  Transmission Date: 20120928
  Serious: No
  Sender: FDA-Public Use
  Company Number: US-ASTRAZENECA-2012SE54691

PATIENT
  Age: 63 Year
  Sex: Male

DRUGS (3)
  1. PREVACID [Suspect]
     Route: 065
  2. PRILOSEC [Suspect]
     Route: 048
  3. NEXIUM [Suspect]
     Route: 048

REACTIONS (2)
  - TOOTHACHE [None]
  - GINGIVAL PAIN [None]
